FAERS Safety Report 8257927-2 (Version None)
Quarter: 2012Q2

REPORT INFORMATION
  Report Type: 
  Country: None (occurrence: None)
  Receive Date: 20120404
  Receipt Date: 20120330
  Transmission Date: 20120825
  Serious: No
  Sender: FDA-Public Use
  Company Number: US-PFIZER INC-2012081913

PATIENT
  Sex: Female
  Weight: 249 kg

DRUGS (7)
  1. GLUCOTROL [Suspect]
     Indication: DIABETES MELLITUS
     Dosage: UNK
     Route: 048
  2. GLUCOTROL XL [Concomitant]
     Indication: DIABETES MELLITUS
     Dosage: 10 MG, 2X/DAY
  3. METFORMIN [Concomitant]
     Indication: DIABETES MELLITUS
     Dosage: 1000 MG, 2X/DAY
  4. TOVIAZ [Concomitant]
     Indication: INCONTINENCE
     Dosage: 8 MG, DAILY
  5. METHOTREXATE [Concomitant]
     Indication: RHEUMATOID ARTHRITIS
     Dosage: UNK, 8 TABLETS DAILY
  6. PLAQUENIL [Concomitant]
     Indication: RHEUMATOID ARTHRITIS
     Dosage: 20 MG, DAILY
  7. NEURONTIN [Concomitant]
     Indication: NEUROPATHY PERIPHERAL
     Dosage: 1600 MG, 3X/DAY

REACTIONS (1)
  - DIARRHOEA [None]
